FAERS Safety Report 25930836 (Version 1)
Quarter: 2025Q4

REPORT INFORMATION
  Report Type: Spontaneous
  Country: US (occurrence: US)
  Receive Date: 20251016
  Receipt Date: 20251016
  Transmission Date: 20260118
  Serious: No
  Sender: DIFGEN PHARMACEUTICALS LLC
  Company Number: US-Difgen-012158

PATIENT

DRUGS (2)
  1. NICOTINE [Suspect]
     Active Substance: NICOTINE
     Indication: Brain fog
     Route: 062
  2. NICOTINE [Suspect]
     Active Substance: NICOTINE
     Indication: Analgesic therapy
     Route: 062

REACTIONS (4)
  - Drug ineffective [Unknown]
  - Product odour abnormal [Unknown]
  - Product packaging difficult to open [Unknown]
  - Product use in unapproved indication [Unknown]
